FAERS Safety Report 17944868 (Version 1)
Quarter: 2020Q2

REPORT INFORMATION
  Report Type: Spontaneous
  Country: US (occurrence: US)
  Receive Date: 20200625
  Receipt Date: 20200625
  Transmission Date: 20200714
  Serious: No
  Sender: FDA-Public Use
  Company Number: US-SUN PHARMACEUTICAL INDUSTRIES LTD-2020R1-242795

PATIENT
  Age: 69 Year
  Sex: Female

DRUGS (1)
  1. RANOLAZINE. [Suspect]
     Active Substance: RANOLAZINE
     Indication: PRODUCT USED FOR UNKNOWN INDICATION
     Dosage: 500 MILLIGRAM, 1DOSE/12HOUR
     Route: 048
     Dates: start: 2018

REACTIONS (4)
  - Headache [Recovering/Resolving]
  - Dizziness [Recovering/Resolving]
  - Product colour issue [Unknown]
  - Palpitations [Recovering/Resolving]
